FAERS Safety Report 9448558 (Version 1)
Quarter: 2013Q3

REPORT INFORMATION
  Report Type: Spontaneous
  Country: US (occurrence: US)
  Receive Date: 20130808
  Receipt Date: 20130808
  Transmission Date: 20140515
  Serious: No
  Sender: FDA-Public Use
  Company Number: US-BAUSCH-BL-2012-000998

PATIENT
  Age: 41 Year
  Sex: Female

DRUGS (2)
  1. CROMOLYN SODIUM NASAL SOLUTION USP [Suspect]
     Indication: HYPERSENSITIVITY
     Dosage: SPRAY; 3 TIMES A DAY; NASAL
     Route: 045
     Dates: start: 20120824, end: 20120924
  2. CROMOLYN SODIUM NASAL SOLUTION USP [Suspect]
     Indication: INFLUENZA

REACTIONS (2)
  - Drug ineffective [Unknown]
  - Drug ineffective for unapproved indication [Unknown]
